FAERS Safety Report 23387779 (Version 1)
Quarter: 2024Q1

REPORT INFORMATION
  Report Type: Report from Study
  Country: US (occurrence: US)
  Receive Date: 20240110
  Receipt Date: 20240110
  Transmission Date: 20240410
  Serious: Yes (Hospitalization)
  Sender: FDA-Public Use
  Company Number: US-AGIOS-2312US03569

PATIENT
  Sex: Male

DRUGS (3)
  1. MITAPIVAT [Suspect]
     Active Substance: MITAPIVAT
     Indication: Haemolytic anaemia
     Dosage: 20 MILLIGRAM, BID
     Route: 048
     Dates: start: 20221022
  2. AMLODIPINE [Concomitant]
     Active Substance: AMLODIPINE BESYLATE
     Indication: Product used for unknown indication
     Dosage: 10 MG
  3. JARDIANCE [Concomitant]
     Active Substance: EMPAGLIFLOZIN
     Indication: Product used for unknown indication

REACTIONS (9)
  - Toothache [Unknown]
  - Tooth infection [Unknown]
  - Gingival swelling [Unknown]
  - Peripheral swelling [Unknown]
  - Fatigue [Unknown]
  - Dehydration [Unknown]
  - Off label use [Unknown]
  - Drug ineffective for unapproved indication [Unknown]
  - Full blood count abnormal [Unknown]
